FAERS Safety Report 19517689 (Version 2)
Quarter: 2021Q3

REPORT INFORMATION
  Report Type: Spontaneous
  Country: DE (occurrence: DE)
  Receive Date: 20210712
  Receipt Date: 20210716
  Transmission Date: 20211014
  Serious: Yes (Other)
  Sender: FDA-Public Use
  Company Number: DE-TEVA-2021-DE-1931123

PATIENT
  Age: 70 Year
  Sex: Male
  Weight: 82 kg

DRUGS (7)
  1. ALLOPURINOL AL 300 [Concomitant]
     Dosage: 1X1 , UNIT DOSE : 300 MG
  2. SIMVASTATIN 20MG [Concomitant]
     Active Substance: SIMVASTATIN
     Dosage: 1X1 , UNIT DOSE : 20 MG
  3. TAMSULOSIN0.4MG [Suspect]
     Active Substance: TAMSULOSIN
     Indication: CYSTITIS
     Dosage: SN 10325833668611 PC 04150093227511 , UNIT DOSE : 0.4 MG
     Route: 065
     Dates: start: 20210622
  4. ACCUZIDE 20/12.5 [Concomitant]
     Dosage: 1 DOSAGE FORMS DAILY; 2X0.5
  5. ASS 100 [Concomitant]
     Active Substance: ASPIRIN
     Dosage: 1X0.5 , UNIT DOSE : 50 MG
  6. TAMSULOSIN0.4MG [Suspect]
     Active Substance: TAMSULOSIN
     Indication: DYSURIA
  7. EUTHYROX [Concomitant]
     Active Substance: LEVOTHYROXINE SODIUM
     Dosage: .75 DOSAGE FORMS DAILY; 1X0.75

REACTIONS (1)
  - Retrograde ejaculation [Unknown]
